FAERS Safety Report 14815014 (Version 1)
Quarter: 2018Q2

REPORT INFORMATION
  Report Type: Spontaneous
  Country: US (occurrence: US)
  Receive Date: 20180426
  Receipt Date: 20180426
  Transmission Date: 20180711
  Serious: Yes (Hospitalization, Other)
  Sender: FDA-Public Use
  Company Number: US-PFIZER INC-2018165767

PATIENT
  Age: 19 Year
  Sex: Male

DRUGS (4)
  1. ECSTASY [Suspect]
     Active Substance: MIDOMAFETAMINE
     Dosage: UNK
  2. ETIZOLAM [Suspect]
     Active Substance: ETIZOLAM
     Dosage: UNK
  3. KETAMINE HCL [Suspect]
     Active Substance: KETAMINE HYDROCHLORIDE
     Dosage: UNK
  4. MARIJUANA [Suspect]
     Active Substance: CANNABIS SATIVA SUBSP. INDICA TOP
     Dosage: UNK

REACTIONS (8)
  - Substance abuse [Unknown]
  - Psychotic disorder [Recovering/Resolving]
  - Gait disturbance [Recovering/Resolving]
  - Unresponsive to stimuli [Recovering/Resolving]
  - Hallucination, visual [Recovering/Resolving]
  - Hallucination, auditory [Recovering/Resolving]
  - Catatonia [Recovering/Resolving]
  - Insomnia [Recovering/Resolving]
